FAERS Safety Report 10479253 (Version 1)
Quarter: 2014Q3

REPORT INFORMATION
  Report Type: Report from Study
  Country: None (occurrence: FR)
  Receive Date: 20140926
  Receipt Date: 20140926
  Transmission Date: 20150326
  Serious: Yes (Other)
  Sender: FDA-Public Use
  Company Number: FR-BAUSCH-BL-2014-005809

PATIENT
  Age: 45 Year
  Sex: Male

DRUGS (2)
  1. HERBESSER [Suspect]
     Active Substance: DILTIAZEM HYDROCHLORIDE
     Indication: PRODUCT USED FOR UNKNOWN INDICATION
  2. NO DRUG NAME [Suspect]
     Active Substance: UNSPECIFIED INGREDIENT

REACTIONS (3)
  - Shock [Unknown]
  - Cardiac arrest [Unknown]
  - Toxicity to various agents [None]
